FAERS Safety Report 4368834-X (Version None)
Quarter: 2004Q2

REPORT INFORMATION
  Report Type: 
  Country: None (occurrence: None)
  Receive Date: 20040528
  Receipt Date: 20040504
  Transmission Date: 20050107
  Serious: Yes (Hospitalization)
  Sender: FDA-Public Use
  Company Number: 200403689

PATIENT
  Age: 45 Year
  Sex: Female

DRUGS (2)
  1. MOTRIN IB [Suspect]
     Indication: PAIN
     Dosage: 600 MG, Q4H, PRN, PO
     Route: 048
     Dates: start: 20040312, end: 20040501
  2. VICODIN [Concomitant]

REACTIONS (2)
  - BLOOD PRESSURE DECREASED [None]
  - DRUG HYPERSENSITIVITY [None]
